FAERS Safety Report 15747075 (Version 1)
Quarter: 2018Q4

REPORT INFORMATION
  Report Type: Spontaneous
  Country: FR (occurrence: FR)
  Receive Date: 20181220
  Receipt Date: 20181220
  Transmission Date: 20190205
  Serious: Yes (Life-Threatening, Hospitalization, Congenital Anomaly, Other)
  Sender: FDA-Public Use
  Company Number: FR-JNJFOC-20181215544

PATIENT
  Sex: Male
  Weight: 4.63 kg

DRUGS (4)
  1. INSULIN [Suspect]
     Active Substance: INSULIN NOS
     Indication: FOETAL EXPOSURE DURING PREGNANCY
     Route: 064
  2. HALOPERIDOL. [Suspect]
     Active Substance: HALOPERIDOL
     Indication: FOETAL EXPOSURE DURING PREGNANCY
     Route: 064
  3. OLANZAPINE. [Suspect]
     Active Substance: OLANZAPINE
     Indication: FOETAL EXPOSURE DURING PREGNANCY
     Route: 064
  4. OLANZAPINE. [Suspect]
     Active Substance: OLANZAPINE
     Indication: FOETAL EXPOSURE DURING PREGNANCY
     Route: 064

REACTIONS (12)
  - Hypotonia neonatal [Unknown]
  - Neonatal respiratory distress [Unknown]
  - Drug level above therapeutic [Unknown]
  - Foetal exposure during pregnancy [Unknown]
  - Foetal arrhythmia [Unknown]
  - Drug withdrawal syndrome neonatal [Recovered/Resolved]
  - Toxicity to various agents [Unknown]
  - Hypoglycaemia neonatal [Unknown]
  - Foetal heart rate abnormal [Unknown]
  - Tremor [Unknown]
  - Coma [Unknown]
  - Respiratory distress [Unknown]
